FAERS Safety Report 6235711-9 (Version None)
Quarter: 2009Q2

REPORT INFORMATION
  Report Type: 
  Country: None (occurrence: None)
  Receive Date: 20090616
  Receipt Date: 20090602
  Transmission Date: 20091009
  Serious: Yes (Life-Threatening)
  Sender: FDA-Public Use
  Company Number: A-NJ2009-25318

PATIENT
  Age: 15 Year
  Sex: Female

DRUGS (3)
  1. TRACLEER [Suspect]
     Indication: PULMONARY HYPERTENSION
     Dosage: 31.25 MG, BID, ORAL
     Route: 047
     Dates: start: 20090430
  2. FLOLAN [Concomitant]
  3. REVATIO [Concomitant]

REACTIONS (4)
  - OFF LABEL USE [None]
  - OROPHARYNGEAL PAIN [None]
  - PNEUMONIA [None]
  - UPPER RESPIRATORY TRACT CONGESTION [None]
